FAERS Safety Report 8492512-9 (Version None)
Quarter: 2012Q3

REPORT INFORMATION
  Report Type: 
  Country: None (occurrence: None)
  Receive Date: 20120706
  Receipt Date: 20120628
  Transmission Date: 20120928
  Serious: Yes (Hospitalization)
  Sender: FDA-Public Use
  Company Number: FR-ABBOTT-12P-056-0951730-00

PATIENT
  Sex: Male

DRUGS (9)
  1. PREDNISONE [Concomitant]
     Indication: BRONCHITIS
     Dates: start: 20120420
  2. VENTOLIN [Concomitant]
     Indication: ASTHMA
  3. CLARITHROMYCIN [Suspect]
     Indication: BRONCHITIS
     Dosage: TWO CURES
     Route: 048
     Dates: start: 20120131, end: 20120207
  4. CLARITHROMYCIN [Suspect]
     Dates: start: 20120420
  5. ROVAMYCINE [Suspect]
     Indication: BRONCHITIS
     Route: 048
     Dates: start: 20120228, end: 20120306
  6. LORATADINE [Suspect]
     Indication: BRONCHITIS
     Dates: start: 20120415, end: 20120427
  7. NEXIUM [Suspect]
     Indication: PRODUCT USED FOR UNKNOWN INDICATION
     Route: 048
  8. AMOXICILLIN [Concomitant]
     Indication: BRONCHITIS
     Dates: start: 20120218, end: 20120225
  9. PULMICORT [Concomitant]
     Indication: ASTHMA

REACTIONS (4)
  - WEIGHT DECREASED [None]
  - BILE DUCT STENOSIS [None]
  - HEPATITIS CHOLESTATIC [None]
  - CYTOLYTIC HEPATITIS [None]
